FAERS Safety Report 8172511-7 (Version None)
Quarter: 2012Q1

REPORT INFORMATION
  Report Type: 
  Country: None (occurrence: None)
  Receive Date: 20120227
  Receipt Date: 20120227
  Transmission Date: 20120608
  Serious: Yes (Hospitalization)
  Sender: FDA-Public Use
  Company Number: None

PATIENT
  Age: 47 Year
  Sex: Female
  Weight: 142 kg

DRUGS (3)
  1. ULTRAM [Concomitant]
  2. SERZONE [Suspect]
     Indication: DEPRESSION
  3. IBUPROFEN TABLETS [Concomitant]

REACTIONS (2)
  - MENTAL STATUS CHANGES [None]
  - ACUTE HEPATIC FAILURE [None]
